FAERS Safety Report 10512834 (Version 2)
Quarter: 2014Q4

REPORT INFORMATION
  Report Type: Spontaneous
  Country: US (occurrence: US)
  Receive Date: 20141013
  Receipt Date: 20141216
  Transmission Date: 20150528
  Serious: No
  Sender: FDA-Public Use
  Company Number: US-009507513-1409USA014895

PATIENT
  Sex: Female
  Weight: 58.96 kg

DRUGS (1)
  1. NEXPLANON [Suspect]
     Active Substance: ETONOGESTREL
     Indication: CONTRACEPTION
     Dosage: 1 ROD/ 3 YEARS
     Route: 059
     Dates: start: 20131031, end: 20140905

REACTIONS (7)
  - Menorrhagia [Unknown]
  - Product quality issue [Unknown]
  - Device difficult to use [Recovered/Resolved]
  - Back pain [Unknown]
  - Limb injury [Unknown]
  - Burning sensation [Unknown]
  - Device kink [Recovered/Resolved]

NARRATIVE: CASE EVENT DATE: 2014
